FAERS Safety Report 23293783 (Version 3)
Quarter: 2024Q3

REPORT INFORMATION
  Report Type: Report from Study
  Country: KR (occurrence: KR)
  Receive Date: 20231213
  Receipt Date: 20240802
  Transmission Date: 20241017
  Serious: No
  Sender: JAZZ
  Company Number: KR-BR-2023-0271

PATIENT
  Age: 64 Year
  Sex: Male
  Weight: 56.4 kg

DRUGS (15)
  1. LURBINECTEDIN [Suspect]
     Active Substance: LURBINECTEDIN
     Indication: Small cell lung cancer
     Dosage: 3.2 MILLIGRAM/SQ. METER, Q3W
     Route: 042
     Dates: start: 20231013, end: 20231102
  2. LURBINECTEDIN [Suspect]
     Active Substance: LURBINECTEDIN
     Dosage: 3.5 MILLIGRAM/SQ. METER, Q3W
     Route: 042
     Dates: start: 20231102, end: 20231122
  3. MEGESTROL ACETATE [Concomitant]
     Active Substance: MEGESTROL ACETATE
     Indication: Decreased appetite
     Dosage: 650MG/5.2ML/ PK
     Route: 048
     Dates: start: 20231013
  4. BONALING A [Concomitant]
     Indication: Prophylaxis of nausea and vomiting
     Dosage: 50 MILLIGRAM, T
     Route: 048
     Dates: start: 20231013
  5. CODEINE [Concomitant]
     Active Substance: CODEINE
     Indication: Pain prophylaxis
     Dosage: 20 MILLIGRAM, T
     Route: 048
     Dates: start: 20231013
  6. YUHAN DEXAMETHASONE [Concomitant]
     Indication: Neoplasm malignant
     Dosage: 5MG/1ML/A
     Route: 042
     Dates: start: 20231013, end: 20231122
  7. KANITRON [Concomitant]
     Indication: Prophylaxis of nausea and vomiting
     Dosage: 3MG/3ML/A
     Route: 042
     Dates: start: 20231013, end: 20231122
  8. FILGRASTIM [Concomitant]
     Active Substance: FILGRASTIM
     Indication: Neutropenia
     Dosage: 300MCG/1.2ML /V PRN
     Route: 042
     Dates: start: 20231013
  9. HERBALS [Concomitant]
     Active Substance: HERBALS
     Indication: Gastrointestinal disorder prophylaxis
     Dosage: 30 MILLIGRAM, T
     Route: 048
     Dates: start: 20231013
  10. NORZYME [Concomitant]
     Indication: Gastrointestinal disorder prophylaxis
     Dosage: UNK
     Route: 042
     Dates: start: 20231013, end: 20231130
  11. OMEPRAZOLE [Concomitant]
     Active Substance: OMEPRAZOLE
     Indication: Pain prophylaxis
     Dosage: 20 MILLIGRAM, T
     Route: 048
     Dates: start: 20231013
  12. UNI C [Concomitant]
     Indication: Vitamin supplementation
     Dosage: 10G/20ML/V
     Route: 042
     Dates: start: 20231013
  13. ZYREPIN [Concomitant]
     Indication: Prophylaxis of nausea and vomiting
     Dosage: 2.5 MILLIGRAM, T
     Route: 048
     Dates: start: 20231013
  14. PENIRAMIN [Concomitant]
     Dosage: 4MG/2ML/A
     Route: 042
     Dates: start: 20231013, end: 20231122
  15. GASTER [Concomitant]
     Active Substance: FAMOTIDINE
     Indication: Premedication
     Dosage: 20MG/10ML
     Route: 042
     Dates: start: 20231013, end: 20231122

REACTIONS (1)
  - Lethargy [Recovered/Resolved]

NARRATIVE: CASE EVENT DATE: 20231128
